FAERS Safety Report 22177681 (Version 1)
Quarter: 2023Q2

REPORT INFORMATION
  Report Type: Spontaneous
  Country: JP (occurrence: JP)
  Receive Date: 20230405
  Receipt Date: 20230405
  Transmission Date: 20230722
  Serious: Yes (Death, Hospitalization, Other)
  Sender: FDA-Public Use
  Company Number: JP-ASTELLAS-2022JP000528

PATIENT
  Sex: Male
  Weight: 50 kg

DRUGS (13)
  1. LINACLOTIDE [Suspect]
     Active Substance: LINACLOTIDE
     Indication: Constipation
     Dosage: 0.25 MG, QD
     Route: 048
     Dates: start: 20211124, end: 20220111
  2. ENFORTUMAB VEDOTIN [Suspect]
     Active Substance: ENFORTUMAB VEDOTIN
     Indication: Bladder cancer
     Dosage: 60 MG, 1.1 MG/KG
     Route: 041
     Dates: start: 20220118, end: 20220118
  3. ENFORTUMAB VEDOTIN [Suspect]
     Active Substance: ENFORTUMAB VEDOTIN
     Dosage: 60 MG, 1.1 MG/KG
     Route: 041
     Dates: start: 20220104, end: 20220104
  4. ENFORTUMAB VEDOTIN [Suspect]
     Active Substance: ENFORTUMAB VEDOTIN
     Dosage: 60 MG, 1.1 MG/KG
     Route: 041
     Dates: start: 20211215, end: 20211222
  5. MAGNESIUM OXIDE [Suspect]
     Active Substance: MAGNESIUM OXIDE
     Indication: Constipation
     Dosage: 660 MG, TID
     Route: 048
     Dates: start: 20200212, end: 20220111
  6. HERBALS [Suspect]
     Active Substance: HERBALS
     Indication: Constipation
     Dosage: 2.5 G, TID
     Route: 048
     Dates: start: 20200320, end: 20220111
  7. LANSOPRAZOLE [Concomitant]
     Active Substance: LANSOPRAZOLE
     Indication: Gastrooesophageal reflux disease
     Dosage: 30 MG, QD
     Dates: start: 20200204, end: 20220208
  8. CALONAL [Concomitant]
     Active Substance: ACETAMINOPHEN
     Indication: Tumour associated fever
     Dosage: 500 MG
     Route: 048
     Dates: start: 20210427, end: 20220208
  9. CALONAL [Concomitant]
     Active Substance: ACETAMINOPHEN
     Indication: Pain
  10. DECADRON [Concomitant]
     Active Substance: DEXAMETHASONE
     Indication: Tumour associated fever
     Dosage: 0.5 MG, TWICE DAILY
     Route: 048
     Dates: start: 20211109, end: 20220208
  11. MIYA-BM [Concomitant]
     Active Substance: CLOSTRIDIUM BUTYRICUM SPORES STRAIN M-55
     Indication: Enterocolitis
     Dosage: 1 G, TID
     Route: 048
     Dates: start: 20220111, end: 20220208
  12. MIYA-BM [Concomitant]
     Active Substance: CLOSTRIDIUM BUTYRICUM SPORES STRAIN M-55
     Indication: Diarrhoea
     Dosage: 1 GRAM
     Route: 048
     Dates: start: 20211130
  13. TRAMADOL HYDROCHLORIDE [Concomitant]
     Active Substance: TRAMADOL HYDROCHLORIDE
     Indication: Cancer pain
     Dosage: 100 MG, QD
     Route: 048
     Dates: start: 20211213, end: 20220125

REACTIONS (2)
  - Death [Fatal]
  - Diarrhoea [Recovering/Resolving]

NARRATIVE: CASE EVENT DATE: 20220108
